FAERS Safety Report 9975499 (Version 1)
Quarter: 2014Q1

REPORT INFORMATION
  Report Type: Report from Study
  Country: US (occurrence: US)
  Receive Date: 20140306
  Receipt Date: 20140306
  Transmission Date: 20141002
  Serious: No
  Sender: FDA-Public Use
  Company Number: US-ABBVIE-13P-163-1155754-00

PATIENT
  Age: 52 Year
  Sex: Male

DRUGS (8)
  1. AMBIEN [Concomitant]
     Indication: SLEEP DISORDER
  2. AMBIEN [Concomitant]
     Indication: DEPRESSION
  3. UNKNOWN LOTION [Concomitant]
     Indication: PRODUCT USED FOR UNKNOWN INDICATION
  4. HUMIRA [Suspect]
     Indication: ANKYLOSING SPONDYLITIS
     Dates: start: 20130911
  5. LISINOPRIL [Concomitant]
     Indication: HYPERTENSION
  6. SIMVASTATIN [Concomitant]
     Indication: BLOOD CHOLESTEROL INCREASED
  7. CLONAZEPAM [Concomitant]
     Indication: SLEEP DISORDER
  8. CLONAZEPAM [Concomitant]
     Indication: DEPRESSION

REACTIONS (4)
  - Dry skin [Not Recovered/Not Resolved]
  - Erythema [Not Recovered/Not Resolved]
  - Eyelid oedema [Not Recovered/Not Resolved]
  - Eyelid skin dryness [Not Recovered/Not Resolved]
